FAERS Safety Report 25926866 (Version 1)
Quarter: 2025Q4

REPORT INFORMATION
  Report Type: Spontaneous
  Country: JP (occurrence: JP)
  Receive Date: 20251015
  Receipt Date: 20251015
  Transmission Date: 20260118
  Serious: Yes (Hospitalization)
  Sender: SANDOZ
  Company Number: JP-MLMSERVICE-20251002-PI665629-00082-1

PATIENT
  Age: 56 Year
  Sex: Female

DRUGS (3)
  1. BEVACIZUMAB [Suspect]
     Active Substance: BEVACIZUMAB
     Indication: Fallopian tube cancer stage III
     Dosage: UNK
     Route: 065
  2. CARBOPLATIN [Suspect]
     Active Substance: CARBOPLATIN
     Indication: Fallopian tube cancer stage III
     Dosage: UNK
     Route: 065
  3. PACLITAXEL [Suspect]
     Active Substance: PACLITAXEL
     Indication: Fallopian tube cancer stage III
     Dosage: UNK
     Route: 065

REACTIONS (2)
  - Pulmonary sarcoidosis [Recovered/Resolved]
  - Sarcoidosis [Recovered/Resolved]
